FAERS Safety Report 10141304 (Version 1)
Quarter: 2014Q2

REPORT INFORMATION
  Report Type: Spontaneous
  Country: IT (occurrence: IT)
  Receive Date: 20140429
  Receipt Date: 20140429
  Transmission Date: 20141212
  Serious: Yes (Hospitalization)
  Sender: FDA-Public Use
  Company Number: IT-ELI_LILLY_AND_COMPANY-IT201404006306

PATIENT
  Age: 71 Year
  Sex: Male
  Weight: 80 kg

DRUGS (11)
  1. HUMALOG LISPRO [Suspect]
     Indication: INSULIN-REQUIRING TYPE 2 DIABETES MELLITUS
     Dosage: 29 IU, QD
     Route: 058
     Dates: start: 20100101, end: 20140304
  2. LANTUS [Suspect]
     Indication: INSULIN-REQUIRING TYPE 2 DIABETES MELLITUS
     Dosage: 28 IU, QD
     Route: 058
     Dates: start: 20100101, end: 20140304
  3. ATENOLOL [Concomitant]
     Dosage: 50 MG, UNKNOWN
     Route: 048
  4. TAMSULOSIN HYDROCHLORIDE [Concomitant]
     Dosage: 1 DF, UNKNOWN
     Route: 048
  5. OMEPRAZOLE [Concomitant]
     Dosage: 20 MG, UNKNOWN
     Route: 048
  6. LORTAAN [Concomitant]
     Dosage: 1 DF, UNKNOWN
     Route: 048
  7. RAMIPRIL [Concomitant]
     Dosage: 1 DF, UNKNOWN
     Route: 048
  8. SINVACOR [Concomitant]
     Dosage: 1 DF, UNKNOWN
     Route: 048
  9. ALTIAZEM [Concomitant]
     Dosage: 1 DF, UNKNOWN
     Route: 048
  10. MONOKET [Concomitant]
     Dosage: 1 DF, UNKNOWN
     Route: 048
  11. CARDIOASPIRIN [Concomitant]
     Dosage: 1 DF, UNKNOWN
     Route: 048

REACTIONS (2)
  - Hypoglycaemia [Recovered/Resolved]
  - Confusional state [Recovered/Resolved]
